FAERS Safety Report 17640029 (Version 1)
Quarter: 2020Q2

REPORT INFORMATION
  Report Type: Spontaneous
  Country: US (occurrence: US)
  Receive Date: 20200407
  Receipt Date: 20200407
  Transmission Date: 20200713
  Serious: No
  Sender: FDA-Public Use
  Company Number: US-GALDERMA-US2020004445

PATIENT
  Age: 23 Year
  Sex: Female

DRUGS (3)
  1. PANOXYL [Concomitant]
     Active Substance: BENZOYL PEROXIDE
     Indication: ACNE
     Route: 065
  2. GENTLE FACE WASH [Concomitant]
     Indication: ACNE
     Route: 061
  3. DIFFERIN GEL [Suspect]
     Active Substance: ADAPALENE
     Indication: ACNE
     Dosage: 0.1%
     Route: 061
     Dates: start: 202001, end: 202001

REACTIONS (2)
  - Skin irritation [Recovered/Resolved]
  - Erythema [Recovered/Resolved]

NARRATIVE: CASE EVENT DATE: 202001
